FAERS Safety Report 15493067 (Version 1)
Quarter: 2018Q4

REPORT INFORMATION
  Report Type: Report from Study
  Country: JP (occurrence: JP)
  Receive Date: 20181012
  Receipt Date: 20181012
  Transmission Date: 20190205
  Serious: Yes (Hospitalization)
  Sender: FDA-Public Use
  Company Number: JP-TEVA-201802_00001328

PATIENT
  Age: 47 Year
  Sex: Female
  Weight: 34.8 kg

DRUGS (13)
  1. VEDOLIZUMAB [Suspect]
     Active Substance: VEDOLIZUMAB
     Indication: CROHN^S DISEASE
     Route: 041
     Dates: start: 20140428, end: 20140924
  2. MESALAZINE [Suspect]
     Active Substance: MESALAMINE
     Indication: CROHN^S DISEASE
     Dosage: 3000 MILLIGRAM DAILY;
     Route: 048
  3. ESCHERICHIA COLI LYOPHILISATE [Suspect]
     Active Substance: ESCHERICHIA COLI
     Indication: CROHN^S DISEASE
     Route: 062
     Dates: start: 20140311
  4. LEVOFLOXACIN. [Suspect]
     Active Substance: LEVOFLOXACIN
     Indication: CROHN^S DISEASE
     Dosage: 500 MILLIGRAM DAILY;
     Route: 048
     Dates: start: 20140901, end: 20140908
  5. PREDNISOLONE TABLETS 5MG. [Suspect]
     Active Substance: PREDNISOLONE
     Indication: CROHN^S DISEASE
     Dosage: 5 MILLIGRAM DAILY;
     Route: 048
     Dates: end: 20141015
  6. CLOSTRIDIUM BUTYRICUM [Suspect]
     Active Substance: CLOSTRIDIUM BUTYRICUM SPORES STRAIN M-55
     Indication: CROHN^S DISEASE
     Dosage: 6 DOSAGE FORMS DAILY;
     Route: 048
  7. SANACTASE [Suspect]
     Active Substance: AMYLASE
     Indication: CROHN^S DISEASE
     Dosage: 9 DOSAGE FORMS DAILY;
     Route: 048
  8. PREDNISOLONE TABLETS 5MG. [Suspect]
     Active Substance: PREDNISOLONE
     Route: 048
     Dates: start: 20141016, end: 20141023
  9. MAGNESIUM HYDROXIDE. [Suspect]
     Active Substance: MAGNESIUM HYDROXIDE
     Indication: CROHN^S DISEASE
     Route: 048
     Dates: start: 20140218
  10. AZATHIOPRINE. [Suspect]
     Active Substance: AZATHIOPRINE
     Indication: CROHN^S DISEASE
     Dosage: 25 MILLIGRAM DAILY;
     Route: 048
     Dates: start: 20140818, end: 20140915
  11. NUTRIENTS NOS [Suspect]
     Active Substance: UNSPECIFIED INGREDIENT
     Indication: CROHN^S DISEASE
     Route: 048
     Dates: end: 20140907
  12. DOMPERIDONE TABLET 5MG TYK [Suspect]
     Active Substance: DOMPERIDONE
     Indication: CROHN^S DISEASE
     Route: 048
     Dates: start: 20140507
  13. DIMETICONE, PINAVERIUM BROMIDE [Suspect]
     Active Substance: DIMETHICONE\PINAVERIUM BROMIDE
     Indication: CROHN^S DISEASE
     Route: 048

REACTIONS (1)
  - Crohn^s disease [Recovered/Resolved]

NARRATIVE: CASE EVENT DATE: 20140908
